FAERS Safety Report 24818494 (Version 1)
Quarter: 2025Q1

REPORT INFORMATION
  Report Type: Spontaneous
  Country: FR (occurrence: FR)
  Receive Date: 20250108
  Receipt Date: 20250108
  Transmission Date: 20250409
  Serious: Yes (Hospitalization, Other)
  Sender: HIKMA
  Company Number: FR-HIKMA PHARMACEUTICALS-FR-H14001-24-12213

PATIENT
  Age: 72 Year
  Sex: Male
  Weight: 62 kg

DRUGS (3)
  1. FLUOROURACIL [Suspect]
     Active Substance: FLUOROURACIL
     Indication: Adenocarcinoma pancreas
     Dosage: 2400 MILLIGRAM/SQ. METER, QOW
     Route: 042
     Dates: start: 20240405, end: 20241119
  2. IRINOTECAN [Suspect]
     Active Substance: IRINOTECAN
     Indication: Adenocarcinoma pancreas
     Dosage: 180 MILLIGRAM/SQ. METER, QOW
     Route: 042
     Dates: start: 20240405, end: 20241119
  3. OXALIPLATIN [Suspect]
     Active Substance: OXALIPLATIN
     Indication: Adenocarcinoma pancreas
     Dosage: 85 MILLIGRAM/SQ. METER, QOW
     Route: 042
     Dates: start: 20240405, end: 20241119

REACTIONS (1)
  - Liver abscess [Recovered/Resolved with Sequelae]

NARRATIVE: CASE EVENT DATE: 20241126
